FAERS Safety Report 15599230 (Version 1)
Quarter: 2018Q4

REPORT INFORMATION
  Report Type: Spontaneous
  Country: US (occurrence: US)
  Receive Date: 20181108
  Receipt Date: 20181108
  Transmission Date: 20190205
  Serious: Yes (Hospitalization)
  Sender: FDA-Public Use
  Company Number: US-PFIZER INC-2018456833

PATIENT
  Age: 76 Year
  Sex: Female

DRUGS (1)
  1. PREMARIN [Suspect]
     Active Substance: ESTROGENS, CONJUGATED
     Dosage: UNK
     Dates: start: 1996

REACTIONS (6)
  - Hot flush [Unknown]
  - Vaginal haemorrhage [Unknown]
  - Feeding disorder [Unknown]
  - Gait inability [Unknown]
  - Depression [Unknown]
  - Insomnia [Unknown]
